FAERS Safety Report 22629502 (Version 1)
Quarter: 2023Q2

REPORT INFORMATION
  Report Type: Spontaneous
  Country: FI (occurrence: FI)
  Receive Date: 20230622
  Receipt Date: 20230622
  Transmission Date: 20230721
  Serious: Yes (Hospitalization)
  Sender: FDA-Public Use
  Company Number: None

PATIENT
  Age: 26 Year
  Sex: Female

DRUGS (1)
  1. SULFASALAZINE [Suspect]
     Active Substance: SULFASALAZINE
     Indication: Rheumatoid arthritis
     Dosage: 2 G, DAILY
     Route: 048
     Dates: start: 2023, end: 2023

REACTIONS (5)
  - Photosensitivity reaction [Recovering/Resolving]
  - Skin exfoliation [Recovering/Resolving]
  - Sunburn [Recovering/Resolving]
  - Blister [Recovering/Resolving]
  - Skin erosion [Recovering/Resolving]

NARRATIVE: CASE EVENT DATE: 20230507
